FAERS Safety Report 17628841 (Version 5)
Quarter: 2020Q3

REPORT INFORMATION
  Report Type: Spontaneous
  Country: US (occurrence: US)
  Receive Date: 20200406
  Receipt Date: 20200715
  Transmission Date: 20201102
  Serious: Yes (Hospitalization, Other)
  Sender: FDA-Public Use
  Company Number: US-GLAXOSMITHKLINE-US2020AMR058917

PATIENT
  Age: 66 Year
  Sex: Female

DRUGS (6)
  1. REVATIO [Concomitant]
     Active Substance: SILDENAFIL CITRATE
     Indication: PRODUCT USED FOR UNKNOWN INDICATION
     Dosage: UNK
     Route: 065
  2. FLOLAN [Suspect]
     Active Substance: EPOPROSTENOL SODIUM
     Indication: PULMONARY ARTERIAL HYPERTENSION
     Dosage: 32 NG/KG/MIN
     Route: 065
     Dates: start: 20070412
  3. FLOLAN DILUENT PH 12 [Suspect]
     Active Substance: GLYCINE\MANNITOL\SODIUM CHLORIDE
     Indication: PULMONARY ARTERIAL HYPERTENSION
     Dosage: UNK
     Route: 065
     Dates: start: 20160830
  4. FLOLAN DILUENT PH 12 [Suspect]
     Active Substance: GLYCINE\MANNITOL\SODIUM CHLORIDE
     Dosage: UNK
     Route: 065
  5. OPSUMIT [Concomitant]
     Active Substance: MACITENTAN
     Indication: PRODUCT USED FOR UNKNOWN INDICATION
     Dosage: UNK
     Route: 065
  6. FLOLAN [Suspect]
     Active Substance: EPOPROSTENOL SODIUM
     Indication: PULMONARY ARTERIAL HYPERTENSION
     Dosage: 32 NG/KG/MIN
     Route: 065
     Dates: start: 20070412

REACTIONS (6)
  - Weight decreased [Unknown]
  - Diabetes mellitus [Unknown]
  - Infusion site infection [Unknown]
  - Mental disorder [Unknown]
  - Device related infection [Unknown]
  - Device related sepsis [Unknown]

NARRATIVE: CASE EVENT DATE: 202005
